FAERS Safety Report 7491755-0 (Version None)
Quarter: 2011Q2

REPORT INFORMATION
  Report Type: 
  Country: None (occurrence: None)
  Receive Date: 20110519
  Receipt Date: 20110510
  Transmission Date: 20111010
  Serious: Yes (Disabling)
  Sender: FDA-Public Use
  Company Number: BR-ASTRAZENECA-2011SE28033

PATIENT
  Age: 5421 Day
  Sex: Male

DRUGS (4)
  1. SEROQUEL XR [Suspect]
     Route: 048
     Dates: start: 20110507, end: 20110509
  2. SEROQUEL XR [Suspect]
     Route: 048
     Dates: start: 20110510
  3. GLIFAGE XR [Concomitant]
     Indication: METABOLIC ABNORMALITY MANAGEMENT
     Route: 048
     Dates: start: 20110401
  4. SEROQUEL XR [Suspect]
     Indication: BIPOLAR DISORDER
     Route: 048
     Dates: start: 20110201, end: 20110506

REACTIONS (4)
  - BLUNTED AFFECT [None]
  - DEPRESSION [None]
  - AGGRESSION [None]
  - DECREASED APPETITE [None]
